FAERS Safety Report 6215490-1 (Version None)
Quarter: 2009Q2

REPORT INFORMATION
  Report Type: 
  Country: None (occurrence: None)
  Receive Date: 20090603
  Receipt Date: 20090528
  Transmission Date: 20091009
  Serious: Yes (Life-Threatening, Hospitalization, Other)
  Sender: FDA-Public Use
  Company Number: GXKR2009DE06260

PATIENT
  Age: 46 Year
  Sex: Male
  Weight: 85 kg

DRUGS (1)
  1. DICLO 1A PHARMA (NGX) (DICLOFENAC) UNKNOWN, 75MG [Suspect]
     Indication: BACK PAIN
     Dosage: 75 MG, BID, ORAL
     Route: 048
     Dates: start: 20081124, end: 20090318

REACTIONS (1)
  - THROMBOTIC THROMBOCYTOPENIC PURPURA [None]
